FAERS Safety Report 11153927 (Version 1)
Quarter: 2015Q2

REPORT INFORMATION
  Report Type: Spontaneous
  Country: US (occurrence: US)
  Receive Date: 20150602
  Receipt Date: 20150602
  Transmission Date: 20150821
  Serious: No
  Sender: FDA-Public Use
  Company Number: US-NOVEN PHARMACEUTICALS, INC.-14US010242

PATIENT
  Sex: Female

DRUGS (4)
  1. DAYTRANA [Suspect]
     Active Substance: METHYLPHENIDATE
     Indication: PRODUCT USED FOR UNKNOWN INDICATION
     Dosage: 20 MG, DAILY
     Route: 062
     Dates: start: 2013
  2. DAYTRANA [Suspect]
     Active Substance: METHYLPHENIDATE
     Dosage: 20 MG, DAILY
     Route: 062
  3. CYMBALTA [Concomitant]
     Active Substance: DULOXETINE HYDROCHLORIDE
     Indication: ANXIETY
     Dosage: UNK
     Dates: start: 2011
  4. LAMICTAL [Concomitant]
     Active Substance: LAMOTRIGINE
     Indication: BIPOLAR DISORDER
     Dosage: UNK
     Dates: start: 2013

REACTIONS (7)
  - Off label use [Not Recovered/Not Resolved]
  - Product quality issue [Not Recovered/Not Resolved]
  - Application site erythema [Recovered/Resolved]
  - Nausea [Recovered/Resolved]
  - Decreased appetite [Not Recovered/Not Resolved]
  - Labelled drug-disease interaction medication error [Not Recovered/Not Resolved]
  - Nervousness [Recovered/Resolved]

NARRATIVE: CASE EVENT DATE: 2013
